FAERS Safety Report 8126606-4 (Version None)
Quarter: 2012Q1

REPORT INFORMATION
  Report Type: 
  Country: None (occurrence: None)
  Receive Date: 20120210
  Receipt Date: 20120201
  Transmission Date: 20120608
  Serious: Yes (Hospitalization)
  Sender: FDA-Public Use
  Company Number: US-BIOGENIDEC-2012BI003901

PATIENT
  Age: 64 Year
  Sex: Male

DRUGS (5)
  1. VERAPAMIL [Concomitant]
     Indication: HYPERTENSION
     Dates: start: 19980101
  2. AVONEX [Suspect]
     Route: 030
     Dates: start: 20030101
  3. HYDROCHLOROTHIAZIDE [Concomitant]
     Indication: HYPERTENSION
     Dates: start: 20111201
  4. HYDRALAZINE HCL [Concomitant]
     Indication: HYPERTENSION
  5. AVONEX [Suspect]
     Indication: MULTIPLE SCLEROSIS
     Route: 030
     Dates: start: 19961001, end: 20030101

REACTIONS (5)
  - HYPERTENSION [None]
  - LOSS OF CONSCIOUSNESS [None]
  - MUSCLE SPASMS [None]
  - NASOPHARYNGITIS [None]
  - MEMORY IMPAIRMENT [None]
